FAERS Safety Report 16018547 (Version 1)
Quarter: 2019Q1

REPORT INFORMATION
  Report Type: Spontaneous
  Country: US (occurrence: US)
  Receive Date: 20190201
  Receipt Date: 20190201
  Transmission Date: 20190418
  Serious: Yes (Hospitalization)
  Sender: FDA-Public Use
  Company Number: None

PATIENT
  Age: 76 Year
  Sex: Male

DRUGS (20)
  1. GAS RELIEF [Concomitant]
     Active Substance: DIMETHICONE
  2. PREDNISONE. [Concomitant]
     Active Substance: PREDNISONE
  3. XARELTO [Concomitant]
     Active Substance: RIVAROXABAN
  4. ESBRIET [Suspect]
     Active Substance: PIRFENIDONE
     Indication: IDIOPATHIC PULMONARY FIBROSIS
     Route: 048
     Dates: start: 20181228
  5. SERTRALINE [Concomitant]
     Active Substance: SERTRALINE HYDROCHLORIDE
  6. CARTIA XT [Concomitant]
     Active Substance: DILTIAZEM HYDROCHLORIDE
  7. LEVOTHYROXIN [Concomitant]
     Active Substance: LEVOTHYROXINE
  8. POLYETH GLYC POW [Concomitant]
  9. IPRATROPIUM/SOL ALBUTEROL [Concomitant]
  10. BISACODYL. [Concomitant]
     Active Substance: BISACODYL
  11. CYCLOBENZAPR [Concomitant]
     Active Substance: CYCLOBENZAPRINE
  12. LISINOPRIL. [Concomitant]
     Active Substance: LISINOPRIL
  13. SPIRIVA [Concomitant]
     Active Substance: TIOTROPIUM BROMIDE MONOHYDRATE
  14. DIGOX [Concomitant]
     Active Substance: DIGOXIN
  15. FUROSEMIDE. [Concomitant]
     Active Substance: FUROSEMIDE
  16. NYSTOP [Concomitant]
     Active Substance: NYSTATIN
  17. PROAIR HFA [Concomitant]
     Active Substance: ALBUTEROL SULFATE
  18. RISPERIDONE. [Concomitant]
     Active Substance: RISPERIDONE
  19. MUCOUS RELIEF TAB [Concomitant]
  20. HYDROCO/APAP [Concomitant]
     Active Substance: ACETAMINOPHEN\HYDROCODONE

REACTIONS (1)
  - Road traffic accident [None]

NARRATIVE: CASE EVENT DATE: 201901
